FAERS Safety Report 10204364 (Version 1)
Quarter: 2014Q2

REPORT INFORMATION
  Report Type: Spontaneous
  Country: US (occurrence: US)
  Receive Date: 20140529
  Receipt Date: 20140529
  Transmission Date: 20141212
  Serious: No
  Sender: FDA-Public Use
  Company Number: US-MYLANLABS-2013S1025613

PATIENT
  Sex: Female

DRUGS (3)
  1. AMITRIPTYLINE HYDROCHLORIDE TABLETS, USP [Suspect]
     Indication: PAIN
     Route: 048
     Dates: end: 201311
  2. AMITRIPTYLINE HYDROCHLORIDE TABLETS, USP [Suspect]
     Indication: OFF LABEL USE
     Route: 048
     Dates: end: 201311
  3. SYNTHROID [Concomitant]
     Indication: HYPOTHYROIDISM
     Route: 048

REACTIONS (1)
  - Dyspepsia [Recovered/Resolved]
